FAERS Safety Report 16458588 (Version 1)
Quarter: 2019Q2

REPORT INFORMATION
  Report Type: Spontaneous
  Country: US (occurrence: US)
  Receive Date: 20190620
  Receipt Date: 20190620
  Transmission Date: 20190711
  Serious: No
  Sender: FDA-Public Use
  Company Number: US-THERAPEUTICSMD-2019TMD00493

PATIENT
  Age: 59 Year
  Sex: Female
  Weight: 51.7 kg

DRUGS (5)
  1. GLUCOSAMINE [Concomitant]
     Active Substance: GLUCOSAMINE
  2. THYROID PILL [Concomitant]
  3. VITAMINS [Concomitant]
     Active Substance: VITAMINS
  4. IMVEXXY [Suspect]
     Active Substance: ESTRADIOL
     Indication: VULVOVAGINAL DRYNESS
     Dosage: 10 ?G, 2X/WEEK
     Route: 067
     Dates: start: 20190303, end: 20190316
  5. CELEXA [Concomitant]
     Active Substance: CITALOPRAM HYDROBROMIDE

REACTIONS (8)
  - Drug ineffective for unapproved indication [Recovered/Resolved]
  - Back pain [Recovering/Resolving]
  - Chest pain [Recovering/Resolving]
  - Breast tenderness [Not Recovered/Not Resolved]
  - Vaginal odour [Not Recovered/Not Resolved]
  - Breast pain [Recovering/Resolving]
  - Blood pressure increased [Recovering/Resolving]
  - Off label use [Recovered/Resolved]

NARRATIVE: CASE EVENT DATE: 201903
